FAERS Safety Report 10879222 (Version 2)
Quarter: 2015Q1

REPORT INFORMATION
  Report Type: Spontaneous
  Country: US (occurrence: US)
  Receive Date: 20150302
  Receipt Date: 20150312
  Transmission Date: 20150721
  Serious: Yes (Death, Hospitalization)
  Sender: FDA-Public Use
  Company Number: US-SA-2015SA023737

PATIENT
  Age: 43 Year
  Sex: Female

DRUGS (3)
  1. PANITUMUMAB [Concomitant]
     Active Substance: PANITUMUMAB
  2. RASBURICASE [Suspect]
     Active Substance: RASBURICASE
     Indication: TUMOUR LYSIS SYNDROME
     Route: 065
  3. DOXORUBICIN [Concomitant]
     Active Substance: DOXORUBICIN

REACTIONS (4)
  - Hypoxia [Unknown]
  - Methaemoglobinaemia [Unknown]
  - Multi-organ failure [Fatal]
  - Haematocrit decreased [Unknown]
